FAERS Safety Report 8560700-9 (Version None)
Quarter: 2012Q3

REPORT INFORMATION
  Report Type: 
  Country: None (occurrence: None)
  Receive Date: 20120727
  Receipt Date: 20120727
  Transmission Date: 20120928
  Serious: Yes (Hospitalization)
  Sender: FDA-Public Use
  Company Number: None

PATIENT
  Age: 80 Year
  Sex: Male
  Weight: 73.18 kg

DRUGS (10)
  1. TRICOR [Concomitant]
  2. SEPTRA DS [Suspect]
     Indication: ULCER
     Dosage: 80MG/160 MG BID PO RECENT
     Route: 048
  3. WARFARIN SODIUM [Concomitant]
  4. ASPIRIN [Concomitant]
  5. FOLIC ACID [Concomitant]
  6. CYMBALTA [Concomitant]
  7. VIT C [Concomitant]
  8. SENOKOT [Concomitant]
  9. FLOMAX [Concomitant]
  10. TUROSEMIDE [Concomitant]

REACTIONS (6)
  - SYNCOPE [None]
  - VASCULAR OCCLUSION [None]
  - MYOCARDIAL ISCHAEMIA [None]
  - CARDIAC DISORDER [None]
  - HYPERKALAEMIA [None]
  - RENAL FAILURE ACUTE [None]
